FAERS Safety Report 8178299-8 (Version None)
Quarter: 2012Q1

REPORT INFORMATION
  Report Type: 
  Country: None (occurrence: None)
  Receive Date: 20120126
  Receipt Date: 20111222
  Transmission Date: 20120608
  Serious: No
  Sender: FDA-Public Use
  Company Number: PHEH2010US03560

PATIENT
  Age: 56 Year
  Sex: Female

DRUGS (12)
  1. AVAPRO [Concomitant]
  2. TRICOR [Concomitant]
  3. OMEPRAZOLE [Concomitant]
  4. ZOLOFT [Concomitant]
  5. METFORMIN HCL [Concomitant]
  6. ACTO (PIOGLITAZONE, PIOGLITAZONE HYDROCHLORIDE) [Concomitant]
  7. LOVAZA [Concomitant]
  8. CRESTOR [Concomitant]
  9. ENALAPRIL MALEATE [Concomitant]
  10. METOPROLOL TARTRATE [Concomitant]
  11. MICROZIDE [Concomitant]
  12. AFINITOR [Suspect]
     Indication: RENAL CELL CARCINOMA
     Dosage: 10 MG, 1 PER DAY
     Dates: start: 20100701

REACTIONS (7)
  - EYE DISORDER [None]
  - EYE PAIN [None]
  - EYE PRURITUS [None]
  - ONYCHOCLASIS [None]
  - DYSURIA [None]
  - EYE OEDEMA [None]
  - URINARY TRACT INFECTION [None]
